FAERS Safety Report 5877731-X (Version None)
Quarter: 2008Q3

REPORT INFORMATION
  Report Type: 
  Country: None (occurrence: None)
  Receive Date: 20080911
  Receipt Date: 20080904
  Transmission Date: 20090109
  Serious: Yes (Death)
  Sender: FDA-Public Use
  Company Number: DE-AMGEN-UK305709

PATIENT
  Sex: Male

DRUGS (1)
  1. NEULASTA [Suspect]
     Indication: AGRANULOCYTOSIS

REACTIONS (1)
  - HAEMOLYTIC URAEMIC SYNDROME [None]
